FAERS Safety Report 4714433-7 (Version None)
Quarter: 2005Q3

REPORT INFORMATION
  Report Type: 
  Country: None (occurrence: None)
  Receive Date: 20050705
  Receipt Date: 20041106
  Transmission Date: 20060218
  Serious: Yes (Other)
  Sender: FDA-Public Use
  Company Number: 2004-0007719

PATIENT
  Sex: Female

DRUGS (1)
  1. VIREAD [Suspect]

REACTIONS (1)
  - BLOOD CREATININE INCREASED [None]
